FAERS Safety Report 5842033-4 (Version None)
Quarter: 2008Q3

REPORT INFORMATION
  Report Type: 
  Country: None (occurrence: None)
  Receive Date: 20080811
  Receipt Date: 20080811
  Transmission Date: 20090109
  Serious: No
  Sender: FDA-Public Use
  Company Number: None

PATIENT
  Age: 57 Year
  Sex: Female
  Weight: 60.782 kg

DRUGS (1)
  1. ZOLPIDEM TARTRATE [Suspect]
     Indication: MIDDLE INSOMNIA
     Dosage: 5 MG BEFORE BEDTIME PO
     Route: 048
     Dates: start: 20080702, end: 20080808

REACTIONS (4)
  - ASTHENOPIA [None]
  - EYE PAIN [None]
  - HEADACHE [None]
  - PHOTOPHOBIA [None]
